FAERS Safety Report 14906985 (Version 2)
Quarter: 2018Q2

REPORT INFORMATION
  Report Type: Spontaneous
  Country: US (occurrence: US)
  Receive Date: 20180517
  Receipt Date: 20180629
  Transmission Date: 20180711
  Serious: Yes (Hospitalization, Other)
  Sender: FDA-Public Use
  Company Number: US-ASTRAZENECA-2018SE62685

PATIENT
  Age: 904 Month
  Sex: Female
  Weight: 84.4 kg

DRUGS (4)
  1. LEVOTHYROXINE. [Concomitant]
     Active Substance: LEVOTHYROXINE
     Indication: THYROID DISORDER
     Route: 048
     Dates: start: 2003
  2. ELOQUIST [Concomitant]
     Indication: ANTICOAGULANT THERAPY
     Route: 048
     Dates: start: 201707
  3. SYMBICORT [Suspect]
     Active Substance: BUDESONIDE\FORMOTEROL FUMARATE DIHYDRATE
     Indication: ASTHMA
     Dosage: 80/4.5 MCG 2 PUFFS, TWO TIMES A DAY
     Route: 055
     Dates: start: 2015
  4. ARMORACIA RUSTICANA [Concomitant]
     Indication: THYROID DISORDER
     Route: 048
     Dates: start: 2003

REACTIONS (9)
  - Herpes zoster [Unknown]
  - Pulmonary oedema [Unknown]
  - Expired product administered [Unknown]
  - Intentional product misuse [Unknown]
  - Thrombosis [Recovered/Resolved]
  - Dyspnoea [Unknown]
  - Device malfunction [Unknown]
  - Pneumonia [Unknown]
  - Asthma [Unknown]

NARRATIVE: CASE EVENT DATE: 201708
